FAERS Safety Report 21984101 (Version 2)
Quarter: 2023Q1

REPORT INFORMATION
  Report Type: Spontaneous
  Country: GB (occurrence: GB)
  Receive Date: 20230213
  Receipt Date: 20230307
  Transmission Date: 20230418
  Serious: Yes (Hospitalization, Disabling, Other)
  Sender: FDA-Public Use
  Company Number: None

PATIENT
  Age: 33 Year
  Sex: Male

DRUGS (1)
  1. OLANZAPINE [Suspect]
     Active Substance: OLANZAPINE
     Indication: Product used for unknown indication
     Dosage: 10MG ON - 2 DOSES ONLY
     Route: 065

REACTIONS (4)
  - Muscle spasms [Recovered/Resolved]
  - Blood creatine phosphokinase increased [Unknown]
  - Balance disorder [Unknown]
  - Fall [Unknown]
